FAERS Safety Report 8165521-7 (Version None)
Quarter: 2012Q1

REPORT INFORMATION
  Report Type: 
  Country: None (occurrence: None)
  Receive Date: 20120227
  Receipt Date: 20120215
  Transmission Date: 20120608
  Serious: Yes (Hospitalization)
  Sender: FDA-Public Use
  Company Number: IT-JNJFOC-20120208365

PATIENT
  Age: 45 Year
  Sex: Male

DRUGS (3)
  1. MESALAMINE [Concomitant]
     Route: 048
  2. ASACOL [Concomitant]
     Route: 054
  3. REMICADE [Suspect]
     Indication: PSORIATIC ARTHROPATHY
     Route: 042
     Dates: start: 20100422, end: 20110613

REACTIONS (2)
  - HYPERTENSION [None]
  - GLOMERULONEPHROPATHY [None]
